FAERS Safety Report 7726807-0 (Version None)
Quarter: 2011Q3

REPORT INFORMATION
  Report Type: 
  Country: None (occurrence: None)
  Receive Date: 20110902
  Receipt Date: 20110718
  Transmission Date: 20111222
  Serious: Yes (Other)
  Sender: FDA-Public Use
  Company Number: CN-GLAXOSMITHKLINE-B0734494A

PATIENT
  Age: 65 Year
  Sex: Male

DRUGS (2)
  1. CEFTAZIDIME [Suspect]
     Route: 042
  2. WINE [Concomitant]
     Route: 065

REACTIONS (2)
  - SHOCK [None]
  - ALCOHOL INTOLERANCE [None]
